FAERS Safety Report 7460120-4 (Version None)
Quarter: 2011Q2

REPORT INFORMATION
  Report Type: 
  Country: None (occurrence: None)
  Receive Date: 20110505
  Receipt Date: 20110428
  Transmission Date: 20111010
  Serious: Yes (Hospitalization, Other)
  Sender: FDA-Public Use
  Company Number: US-ELI_LILLY_AND_COMPANY-US201104008243

PATIENT
  Sex: Male

DRUGS (4)
  1. HUMALOG [Suspect]
     Dosage: 10 U, OTHER
  2. HUMALOG [Suspect]
     Indication: DIABETES MELLITUS
     Dosage: UNK UNK, PRN
  3. CORTICOSTEROIDS [Concomitant]
  4. LEVEMIR [Concomitant]
     Dosage: 65 U, EACH EVENING

REACTIONS (8)
  - UNRESPONSIVE TO STIMULI [None]
  - CARDIAC OPERATION [None]
  - DYSPNOEA [None]
  - CONFUSIONAL STATE [None]
  - BLOOD GLUCOSE INCREASED [None]
  - IMPLANTABLE DEFIBRILLATOR INSERTION [None]
  - LUNG INFECTION [None]
  - MEMORY IMPAIRMENT [None]
